FAERS Safety Report 6663668-5 (Version None)
Quarter: 2010Q1

REPORT INFORMATION
  Report Type: 
  Country: None (occurrence: None)
  Receive Date: 20100331
  Receipt Date: 20100331
  Transmission Date: 20100710
  Serious: Yes (Life-Threatening)
  Sender: FDA-Public Use
  Company Number: None

PATIENT
  Age: 48 Year
  Sex: Female
  Weight: 57.6068 kg

DRUGS (1)
  1. SEASONIQUE [Suspect]
     Indication: ENDOMETRIOSIS
     Dosage: 1 DAILY DAILY PO
     Route: 048
     Dates: start: 20100302, end: 20100329

REACTIONS (4)
  - DISORIENTATION [None]
  - IMPAIRED DRIVING ABILITY [None]
  - INCORRECT DOSE ADMINISTERED [None]
  - VERTIGO [None]
